FAERS Safety Report 13280008 (Version 1)
Quarter: 2017Q1

REPORT INFORMATION
  Report Type: Report from Study
  Country: None (occurrence: US)
  Receive Date: 20170301
  Receipt Date: 20170301
  Transmission Date: 20170428
  Serious: Yes (Hospitalization)
  Sender: FDA-Public Use
  Company Number: US-AMAG PHARMACEUTICALS, INC.-AMAG201601067

PATIENT

DRUGS (3)
  1. MAKENA [Suspect]
     Active Substance: HYDROXYPROGESTERONE CAPROATE
     Indication: CERVICAL INCOMPETENCE
  2. MAKENA [Suspect]
     Active Substance: HYDROXYPROGESTERONE CAPROATE
     Indication: PREMATURE DELIVERY
     Dosage: UNK
     Route: 030
     Dates: start: 20160518
  3. PRENATAL VITAMINS [Concomitant]
     Active Substance: VITAMINS

REACTIONS (4)
  - Amniotic cavity infection [Unknown]
  - Premature rupture of membranes [Unknown]
  - Urinary tract infection [Unknown]
  - Uterine contractions during pregnancy [Unknown]

NARRATIVE: CASE EVENT DATE: 2016
